FAERS Safety Report 15253655 (Version 2)
Quarter: 2018Q3

REPORT INFORMATION
  Report Type: Report from Study
  Country: IN (occurrence: IN)
  Receive Date: 20180808
  Receipt Date: 20180817
  Transmission Date: 20181010
  Serious: Yes (Other)
  Sender: FDA-Public Use
  Company Number: IN-ROCHE-2165904

PATIENT
  Age: 83 Year
  Sex: Female

DRUGS (1)
  1. TECENTRIQ [Suspect]
     Active Substance: ATEZOLIZUMAB
     Indication: NON-SMALL CELL LUNG CANCER
     Route: 042
     Dates: start: 20180626

REACTIONS (4)
  - Asthenia [Unknown]
  - Thrombocytopenia [Unknown]
  - Malaise [Unknown]
  - Urinary tract infection [Unknown]
